FAERS Safety Report 5520274-3 (Version None)
Quarter: 2007Q4

REPORT INFORMATION
  Report Type: 
  Country: None (occurrence: None)
  Receive Date: 20071117
  Receipt Date: 20071112
  Transmission Date: 20080405
  Serious: Yes (Other)
  Sender: FDA-Public Use
  Company Number: PHEH2006US01238

PATIENT

DRUGS (9)
  1. ZOMETA [Suspect]
     Dosage: UNK, QW4
     Route: 042
  2. LIDOCAINE [Concomitant]
  3. LUPRON [Concomitant]
     Dosage: 22.5 MG, UNK
  4. DECETAXEL [Concomitant]
     Dosage: UNK, QW4
  5. ALNHAGAR-P [Concomitant]
     Dosage: UNK, TID
  6. TRAVANTAN [Concomitant]
     Dosage: UNK, QHS
  7. MOTRIN [Concomitant]
     Dosage: 200 MG, QD
  8. VITAMIN B1 W/VITAMIN B12 NOS/VITAMIN B6 [Concomitant]
  9. CENTRUM SILVER [Concomitant]

REACTIONS (10)
  - ARTIFICIAL CROWN PROCEDURE [None]
  - FAILURE OF IMPLANT [None]
  - GINGIVAL PAIN [None]
  - IMPLANT SITE SWELLING [None]
  - MEDICAL DEVICE REMOVAL [None]
  - OSTEONECROSIS [None]
  - PAIN IN JAW [None]
  - TOOTH DISORDER [None]
  - TOOTH EROSION [None]
  - X-RAY ABNORMAL [None]
